FAERS Safety Report 21536187 (Version 1)
Quarter: 2022Q4

REPORT INFORMATION
  Report Type: Spontaneous
  Country: US (occurrence: US)
  Receive Date: 20221101
  Receipt Date: 20221101
  Transmission Date: 20230113
  Serious: Yes (Hospitalization, Other)
  Sender: FDA-Public Use
  Company Number: US-PROCTER_AND_GAMBLE-PH22010849

PATIENT
  Age: 17 Year
  Sex: Male

DRUGS (2)
  1. DEXTROMETHORPHAN [Suspect]
     Active Substance: DEXTROMETHORPHAN
     Indication: Substance use
     Dosage: UNK
     Route: 048
  2. COSMETICS [Suspect]
     Active Substance: COSMETICS

REACTIONS (14)
  - Drug abuse [Unknown]
  - Seizure [Unknown]
  - Delirium [Unknown]
  - Agitation [Unknown]
  - Body temperature increased [Unknown]
  - Rhabdomyolysis [Unknown]
  - Disseminated intravascular coagulation [Unknown]
  - Acute kidney injury [Recovering/Resolving]
  - Acute hepatic failure [Recovering/Resolving]
  - Hypoglycaemia [Unknown]
  - International normalised ratio increased [Unknown]
  - Brain oedema [Unknown]
  - Respiratory failure [None]
  - Posterior reversible encephalopathy syndrome [Unknown]
